FAERS Safety Report 4614765-7 (Version None)
Quarter: 2005Q1

REPORT INFORMATION
  Report Type: 
  Country: None (occurrence: None)
  Receive Date: 20050322
  Receipt Date: 20040721
  Transmission Date: 20050727
  Serious: Yes (Other)
  Sender: FDA-Public Use
  Company Number: IE-BRISTOL-MYERS SQUIBB COMPANY-12648671

PATIENT
  Age: 72 Year
  Sex: Male
  Weight: 85 kg

DRUGS (4)
  1. PRAVASTATIN [Suspect]
     Indication: HYPERCHOLESTEROLAEMIA
     Route: 048
     Dates: start: 20040527, end: 20040606
  2. LITHIUM CARBONATE [Suspect]
     Indication: BIPOLAR DISORDER
     Route: 048
  3. INNOVACE [Concomitant]
     Indication: HYPERTENSION
     Route: 048
  4. NU-SEALS ASPIRIN [Concomitant]

REACTIONS (3)
  - DRY MOUTH [None]
  - SALIVARY HYPERSECRETION [None]
  - THERAPY NON-RESPONDER [None]
